FAERS Safety Report 16300058 (Version 10)
Quarter: 2024Q2

REPORT INFORMATION
  Report Type: Spontaneous
  Country: CA (occurrence: CA)
  Receive Date: 20190510
  Receipt Date: 20240418
  Transmission Date: 20240716
  Serious: Yes (Life-Threatening, Hospitalization, Other)
  Sender: FDA-Public Use
  Company Number: CA-PURDUE PHARMA-CAN-2019-0010024

PATIENT
  Age: 10 Year
  Sex: Male
  Weight: 82 kg

DRUGS (45)
  1. HYDROMORPHONE HYDROCHLORIDE [Suspect]
     Active Substance: HYDROMORPHONE HYDROCHLORIDE
     Indication: Pain
     Dosage: 1.0 MG, Q4H
     Route: 048
  2. HYDROMORPHONE HYDROCHLORIDE [Suspect]
     Active Substance: HYDROMORPHONE HYDROCHLORIDE
     Indication: Femur fracture
     Dosage: 1 MILLIGRAM, 6 EVERY 1 DAYS
     Route: 065
  3. HYDROMORPHONE HYDROCHLORIDE [Suspect]
     Active Substance: HYDROMORPHONE HYDROCHLORIDE
     Indication: Fracture pain
     Dosage: 2 MILLIGRAM, Q4H
     Route: 065
  4. HYDROMORPHONE HYDROCHLORIDE [Suspect]
     Active Substance: HYDROMORPHONE HYDROCHLORIDE
     Dosage: 2 MILLIGRAM
     Route: 065
  5. HYDROMORPHONE HYDROCHLORIDE [Suspect]
     Active Substance: HYDROMORPHONE HYDROCHLORIDE
     Dosage: 1 MILLIGRAM
     Route: 065
  6. HYDROMORPHONE HYDROCHLORIDE [Suspect]
     Active Substance: HYDROMORPHONE HYDROCHLORIDE
     Dosage: 2 MILLIGRAM Q6H
     Route: 065
  7. HYDROMORPHONE HYDROCHLORIDE [Suspect]
     Active Substance: HYDROMORPHONE HYDROCHLORIDE
     Dosage: 1 MILLIGRAM, 6 EVERY 1 DAYS
     Route: 048
  8. HYDROMORPHONE [Suspect]
     Active Substance: HYDROMORPHONE
     Indication: Diabetes insipidus
     Dosage: UNK
     Route: 042
  9. IBUPROFEN [Suspect]
     Active Substance: IBUPROFEN
     Indication: Femur fracture
     Dosage: 600 MILLIGRAM, Q6H
     Route: 048
  10. IBUPROFEN [Suspect]
     Active Substance: IBUPROFEN
     Indication: Pain
     Dosage: 600 MILLIGRAM, QID
     Route: 065
  11. IBUPROFEN [Suspect]
     Active Substance: IBUPROFEN
     Indication: Fracture pain
     Dosage: 6 MILLIGRAM, QID
     Route: 065
  12. IBUPROFEN [Suspect]
     Active Substance: IBUPROFEN
     Dosage: 600 MILLIGRAM
     Route: 048
  13. IBUPROFEN [Suspect]
     Active Substance: IBUPROFEN
     Dosage: 600 MILLIGRAM, Q4H ( 4 EVERY 1 DAYS)
     Route: 048
  14. DESMOPRESSIN [Suspect]
     Active Substance: DESMOPRESSIN
     Indication: Diabetes insipidus
     Dosage: 1.6 MG, QID
     Route: 048
  15. DESMOPRESSIN [Suspect]
     Active Substance: DESMOPRESSIN
     Dosage: 10 MICROGRAM
     Route: 045
  16. DESMOPRESSIN [Suspect]
     Active Substance: DESMOPRESSIN
     Dosage: 1.6 MILLIGRAM, Q6H
     Route: 048
  17. DESMOPRESSIN [Suspect]
     Active Substance: DESMOPRESSIN
     Dosage: 0.6 MILLIGRAM, PRN
     Route: 048
  18. DESMOPRESSIN [Suspect]
     Active Substance: DESMOPRESSIN
     Dosage: 0.5 MILLIGRAM, BID
     Route: 048
  19. DESMOPRESSIN [Suspect]
     Active Substance: DESMOPRESSIN
     Dosage: 0.6 MILLIGRAM, PRN
     Route: 065
  20. DESMOPRESSIN [Suspect]
     Active Substance: DESMOPRESSIN
     Dosage: 10 MILLICURIE
     Route: 045
  21. DESMOPRESSIN [Suspect]
     Active Substance: DESMOPRESSIN
     Dosage: 3.4 MILLIGRAM, DAILY
     Route: 065
  22. DESMOPRESSIN [Suspect]
     Active Substance: DESMOPRESSIN
     Dosage: 1.6 MILLIGRAM, Q4H
     Route: 048
  23. DESMOPRESSIN [Suspect]
     Active Substance: DESMOPRESSIN
     Dosage: 0.1 MILLIGRAM, PRN
     Route: 065
  24. DESMOPRESSIN [Suspect]
     Active Substance: DESMOPRESSIN
     Dosage: 0.6 MILLIGRAM PRN
     Route: 065
  25. ACETAMINOPHEN [Concomitant]
     Active Substance: ACETAMINOPHEN
     Indication: Product used for unknown indication
     Dosage: UNK
     Route: 065
  26. HYDROCORTISONE [Concomitant]
     Active Substance: HYDROCORTISONE
     Indication: Diabetes insipidus
     Dosage: UNK
     Route: 065
  27. HYDROCORTISONE [Concomitant]
     Active Substance: HYDROCORTISONE
     Indication: Hyponatraemia
     Dosage: 15 MILLIGRAM, TID
     Route: 048
  28. HYDROCORTISONE [Concomitant]
     Active Substance: HYDROCORTISONE
     Dosage: 6 MILLIGRAM, BID
     Route: 048
  29. HYDROCORTISONE [Concomitant]
     Active Substance: HYDROCORTISONE
     Dosage: UNK
     Route: 065
  30. HYDROCORTISONE [Concomitant]
     Active Substance: HYDROCORTISONE
     Dosage: 6 MILLIGRAM, Q12H
     Route: 048
  31. HYDROCORTISONE [Concomitant]
     Active Substance: HYDROCORTISONE
     Dosage: 15 MILLIGRAM, Q8H
     Route: 048
  32. SENOKOT [Concomitant]
     Active Substance: SENNOSIDES
     Indication: Product used for unknown indication
     Dosage: UNK
     Route: 065
  33. SOMATROPIN [Concomitant]
     Active Substance: SOMATROPIN
     Indication: Product used for unknown indication
     Dosage: 1.3 MILLIGRAM, DAILY
     Route: 058
  34. SOMATROPIN [Concomitant]
     Active Substance: SOMATROPIN
     Indication: Diabetes insipidus
     Dosage: 1.3 MILLIGRAM, DAILY
     Route: 058
  35. SOMATROPIN [Concomitant]
     Active Substance: SOMATROPIN
     Dosage: UNK
     Route: 058
  36. DESMOPRESSIN [Concomitant]
     Active Substance: DESMOPRESSIN
     Indication: Diabetes insipidus
     Dosage: 1.6 MILLIGRAM, QID
     Route: 048
  37. DESMOPRESSIN [Concomitant]
     Active Substance: DESMOPRESSIN
     Indication: Blood sodium abnormal
     Dosage: 0.5 MILLIGRAM, BID
     Route: 048
  38. DESMOPRESSIN [Concomitant]
     Active Substance: DESMOPRESSIN
     Dosage: 1.4 MILLIGRAM, DAILY
     Route: 048
  39. DESMOPRESSIN [Concomitant]
     Active Substance: DESMOPRESSIN
     Dosage: 0.6 MILLIGRAM
     Route: 048
  40. DESMOPRESSIN [Concomitant]
     Active Substance: DESMOPRESSIN
     Dosage: 0.1 MILLIGRAM
     Route: 048
  41. DESMOPRESSIN [Concomitant]
     Active Substance: DESMOPRESSIN
     Dosage: 10 MICROGRAM
     Route: 045
  42. DESMOPRESSIN [Concomitant]
     Active Substance: DESMOPRESSIN
     Dosage: 0.1 MILLIGRAM
     Route: 048
  43. DESMOPRESSIN [Concomitant]
     Active Substance: DESMOPRESSIN
     Dosage: 10 MICROGRAM
     Route: 045
  44. DESMOPRESSIN [Concomitant]
     Active Substance: DESMOPRESSIN
     Dosage: UNK
     Route: 065
  45. IBUPROFEN [Concomitant]
     Active Substance: IBUPROFEN
     Indication: Product used for unknown indication
     Dosage: UNK
     Route: 065

REACTIONS (16)
  - Seizure [Recovered/Resolved]
  - Hyponatraemia [Recovered/Resolved]
  - Drug interaction [Recovered/Resolved]
  - Labelled drug-drug interaction issue [Recovered/Resolved]
  - Apnoea [Recovered/Resolved]
  - Blood sodium decreased [Recovered/Resolved]
  - Bruxism [Recovered/Resolved]
  - Hypernatraemia [Recovered/Resolved]
  - Hypertonia [Recovered/Resolved]
  - Lethargy [Recovered/Resolved]
  - Unresponsive to stimuli [Recovered/Resolved]
  - Apnoeic attack [Recovered/Resolved]
  - Off label use [Recovered/Resolved]
  - Potentiating drug interaction [Recovered/Resolved]
  - Resuscitation [Recovered/Resolved]
  - Prescribed overdose [Recovered/Resolved]
